FAERS Safety Report 10611522 (Version 1)
Quarter: 2014Q4

REPORT INFORMATION
  Report Type: Spontaneous
  Country: US (occurrence: US)
  Receive Date: 20141126
  Receipt Date: 20141126
  Transmission Date: 20150529
  Serious: Yes (Other)
  Sender: FDA-Public Use
  Company Number: US-MYLANLABS-2014M1012071

PATIENT

DRUGS (5)
  1. GEMCITABINE HYDROCHLORIDE. [Suspect]
     Active Substance: GEMCITABINE HYDROCHLORIDE
     Dosage: 96 UNK, UNK
     Route: 013
  2. GEMCITABINE HYDROCHLORIDE. [Suspect]
     Active Substance: GEMCITABINE HYDROCHLORIDE
     Dosage: 36 MG/M2, UNK
     Route: 013
  3. GEMCITABINE HYDROCHLORIDE. [Suspect]
     Active Substance: GEMCITABINE HYDROCHLORIDE
     Dosage: 115 UNK, UNK
     Route: 013
  4. GEMCITABINE HYDROCHLORIDE. [Suspect]
     Active Substance: GEMCITABINE HYDROCHLORIDE
     Indication: ADENOCARCINOMA PANCREAS
     Dosage: 18 MG/M2, CYCLE
     Route: 014
  5. GEMCITABINE HYDROCHLORIDE. [Suspect]
     Active Substance: GEMCITABINE HYDROCHLORIDE
     Dosage: 75 UNK, UNK
     Route: 013

REACTIONS (5)
  - Upper gastrointestinal haemorrhage [Recovered/Resolved]
  - Gastrointestinal ischaemia [Recovered/Resolved]
  - Duodenal ulcer [Recovered/Resolved]
  - Impaired gastric emptying [Recovered/Resolved]
  - Anaemia [Recovered/Resolved]
